FAERS Safety Report 7713436-8 (Version None)
Quarter: 2011Q3

REPORT INFORMATION
  Report Type: 
  Country: None (occurrence: None)
  Receive Date: 20110826
  Receipt Date: 20110825
  Transmission Date: 20111222
  Serious: Yes (Hospitalization)
  Sender: FDA-Public Use
  Company Number: US-BAYER-2011-077397

PATIENT

DRUGS (14)
  1. ATORVASTATIN CALCIUM [Concomitant]
  2. BUPROPION HYDROCHLORIDE [Concomitant]
  3. HUMIRA [Suspect]
     Dosage: 40 MG, UNK
     Dates: start: 20090501, end: 20100706
  4. LISINOPRIL [Concomitant]
  5. HUMIRA [Suspect]
     Dosage: 40 MG, UNK
     Dates: start: 20090801, end: 20100101
  6. LIOTHYRONINE SODIUM [Concomitant]
  7. ESOMEPRAZOLE MAGNESIUM [Concomitant]
  8. GLIPIZIDE [Concomitant]
  9. AVELOX [Suspect]
     Indication: PNEUMONIA
     Dosage: UNK
     Dates: start: 20090701
  10. HUMIRA [Suspect]
     Dosage: 40 MG, UNK
     Dates: start: 20100101
  11. PIOGLITAZONE HYDROCHLORIDE [Concomitant]
  12. FUROSEMIDE [Concomitant]
  13. UNKNOWN ANTIBIOTIC [Suspect]
     Indication: PNEUMONIA
     Dosage: UNK
     Dates: start: 20090701
  14. METOPROLOL SUCCINATE [Concomitant]

REACTIONS (1)
  - RASH [None]
